FAERS Safety Report 5073007-1 (Version None)
Quarter: 2006Q3

REPORT INFORMATION
  Report Type: 
  Country: None (occurrence: None)
  Receive Date: 20060802
  Receipt Date: 20060720
  Transmission Date: 20061208
  Serious: Yes (Other)
  Sender: FDA-Public Use
  Company Number: 2006090066

PATIENT
  Age: 63 Year
  Sex: Female

DRUGS (7)
  1. XALATAN [Suspect]
     Indication: GLAUCOMA
     Dosage: 3 MCG (3 MCG, 1 IN 1 D),
     Dates: start: 20060601
  2. ANTIHYPERTENSIVES (ANTIHYPERTENSIVES) [Concomitant]
  3. ALL OTHER THERAPEUTIC PRODUCTS [Concomitant]
  4. GLIMEPIRIDE [Concomitant]
  5. METFORMIN     (METFORMIN) [Concomitant]
  6. SERTRALINE [Concomitant]
  7. CLONAZEPAM [Concomitant]

REACTIONS (1)
  - THERAPY NON-RESPONDER [None]
